FAERS Safety Report 7776746-4 (Version None)
Quarter: 2011Q3

REPORT INFORMATION
  Report Type: 
  Country: None (occurrence: None)
  Receive Date: 20110922
  Receipt Date: 20110922
  Transmission Date: 20111222
  Serious: No
  Sender: FDA-Public Use
  Company Number: None

PATIENT
  Age: 76 Year
  Sex: Male

DRUGS (11)
  1. VITAMIN B COMPLEX CAP [Concomitant]
  2. REVLIMID [Suspect]
     Indication: MYELODYSPLASTIC SYNDROME
     Dosage: 10MG DAILY ORAL
     Route: 048
     Dates: start: 20110802
  3. ARANESP [Concomitant]
  4. VITAMIN D [Concomitant]
  5. M.V.I. [Concomitant]
  6. VICODIN [Concomitant]
  7. LOVASTATIN [Concomitant]
  8. NITROSTAT [Concomitant]
  9. ATENOLOL [Concomitant]
  10. PLAVIX [Concomitant]
  11. FOLIC ACID [Concomitant]

REACTIONS (2)
  - NEUTROPHIL COUNT DECREASED [None]
  - PLATELET COUNT DECREASED [None]
